FAERS Safety Report 7868746-0 (Version None)
Quarter: 2011Q4

REPORT INFORMATION
  Report Type: 
  Country: None (occurrence: None)
  Receive Date: 20111028
  Receipt Date: 20101217
  Transmission Date: 20120403
  Serious: No
  Sender: FDA-Public Use
  Company Number: US-AMGEN-USASP2010010054

PATIENT
  Age: 44 Year
  Sex: Female

DRUGS (5)
  1. ATENOLOL [Concomitant]
     Dosage: 25 MG, UNK
  2. HYDROCHLOROTH [Concomitant]
     Dosage: 12.5 MG, UNK
  3. ENBREL [Suspect]
     Indication: PRODUCT USED FOR UNKNOWN INDICATION
     Dosage: 50 MG, QWK
  4. CODEINE SUL TAB [Concomitant]
     Dosage: 15 MG, UNK
  5. BENAZEPRIL HYDROCHLORIDE [Concomitant]
     Dosage: 5 MG, UNK

REACTIONS (2)
  - HEADACHE [None]
  - INJECTION SITE REACTION [None]
